FAERS Safety Report 21004671 (Version 1)
Quarter: 2022Q2

REPORT INFORMATION
  Report Type: Spontaneous
  Country: US (occurrence: None)
  Receive Date: 20220624
  Receipt Date: 20220624
  Transmission Date: 20220721
  Serious: Yes (Other)
  Sender: FDA-Public Use
  Company Number: None

PATIENT
  Age: 53 Year
  Sex: Female

DRUGS (1)
  1. BETASERON [Suspect]
     Active Substance: INTERFERON BETA-1B

REACTIONS (5)
  - Influenza like illness [None]
  - Skin disorder [None]
  - Injection site swelling [None]
  - Injection site erythema [None]
  - Drug intolerance [None]

NARRATIVE: CASE EVENT DATE: 20220624
